FAERS Safety Report 18308168 (Version 1)
Quarter: 2020Q3

REPORT INFORMATION
  Report Type: Report from Study
  Country: IT (occurrence: IT)
  Receive Date: 20200924
  Receipt Date: 20200924
  Transmission Date: 20201103
  Serious: Yes (Other)
  Sender: FDA-Public Use
  Company Number: IT-MYLANLABS-2020M1081135

PATIENT
  Age: 6 Decade
  Sex: Male

DRUGS (11)
  1. DOXORUBICIN [Suspect]
     Active Substance: DOXORUBICIN
     Indication: LYMPHOMA
     Dosage: 50 MILLIGRAM/SQ. METER, RECEIVED EVERY DAY 1 AND 15; ACCORDING TO THE MACOP?B PROTOCOL.
     Route: 065
  2. VINCRISTINE [Suspect]
     Active Substance: VINCRISTINE
     Indication: LYMPHOMA
     Dosage: 1.4 MILLIGRAM/SQ. METER, RECEIVED EVERY DAYS 8 AND 21; ACCORDING TO THE MACOP?B PROTOCOL.
     Route: 065
  3. DOXORUBICIN [Suspect]
     Active Substance: DOXORUBICIN
     Indication: HODGKIN^S DISEASE
     Dosage: 25 MILLIGRAM/SQ. METER, RECEIVED EVERY DAY 1; ACCORDING TO BEACOPP PROTOCOL (AT STANDARD DOSES).
     Route: 065
  4. BLEOMYCIN [Suspect]
     Active Substance: BLEOMYCIN SULFATE
     Indication: LYMPHOMA
     Dosage: 10 MILLIGRAM/SQ. METER, RECEIVED EVERY DAY 21; ACCORDING TO THE MACOP?B PROTOCOL.
     Route: 065
  5. CYCLOPHOSPHAMIDE. [Suspect]
     Active Substance: CYCLOPHOSPHAMIDE
     Indication: HODGKIN^S DISEASE
     Dosage: 650 MILLIGRAM/SQ. METER, RECEIVED EVERY DAY 1; ACCORDING TO
     Route: 065
  6. ETOPOSIDE. [Suspect]
     Active Substance: ETOPOSIDE
     Indication: HODGKIN^S DISEASE
     Dosage: 100 MILLIGRAM/SQ. METER, RECEIVED EVERY DAY 1?3; ACCORDING TO BEACOPP PROTOCOL (AT STANDARD DOSES).
     Route: 065
  7. CYCLOPHOSPHAMIDE. [Suspect]
     Active Substance: CYCLOPHOSPHAMIDE
     Indication: LYMPHOMA
     Dosage: 350 MILLIGRAM/SQ. METER, RECEIVED EVERY DAY 1 AND 15; ACCORDING TO THE MACOP?B PROTOCOL.
     Route: 065
  8. BLEOMYCIN [Suspect]
     Active Substance: BLEOMYCIN SULFATE
     Indication: HODGKIN^S DISEASE
     Dosage: 10 MILLIGRAM/SQ. METER, RECEIVED EVERY DAY 8; ACCORDING TO BEACOPP PROTOCOL (AT STANDARD DOSES).
     Route: 065
  9. VINCRISTINE [Suspect]
     Active Substance: VINCRISTINE
     Indication: HODGKIN^S DISEASE
     Dosage: 1.4 MILLIGRAM/SQ. METER, RECEIVED EVERY DAY 8; ACCORDING TO BEACOPP PROTOCOL (AT STANDARD DOSES).
     Route: 065
  10. PREDNISONE. [Suspect]
     Active Substance: PREDNISONE
     Indication: HODGKIN^S DISEASE
     Dosage: 40 MILLIGRAM/SQ. METER, RECEIVED EVERY DAY 1?14; ACCORDING TO BEACOPP PROTOCOL (AT STANDARD DOSES).
     Route: 048
  11. PROCARBAZINE [Suspect]
     Active Substance: PROCARBAZINE
     Indication: HODGKIN^S DISEASE
     Dosage: 100 MILLIGRAM/SQ. METER, RECEIVED EVERY DAY 1?7; ACCORDING TO BEACOPP PROTOCOL (AT STANDARD DOSES).
     Route: 048

REACTIONS (2)
  - Condition aggravated [Not Recovered/Not Resolved]
  - Peyronie^s disease [Not Recovered/Not Resolved]
